FAERS Safety Report 15772186 (Version 1)
Quarter: 2018Q4

REPORT INFORMATION
  Report Type: Spontaneous
  Country: US (occurrence: US)
  Receive Date: 20181228
  Receipt Date: 20181228
  Transmission Date: 20190205
  Serious: Yes (Other)
  Sender: FDA-Public Use
  Company Number: US-SANIK-2018SA394484AA

PATIENT
  Age: 70 Year
  Sex: Female

DRUGS (1)
  1. ALLEGRA ALLERGY [Suspect]
     Active Substance: FEXOFENADINE HYDROCHLORIDE
     Indication: RESPIRATORY DISORDER
     Dosage: 1 DF, QD

REACTIONS (4)
  - Cerebrovascular accident [Unknown]
  - Vertigo [Unknown]
  - Ear infection [Unknown]
  - Sinusitis [Unknown]
